FAERS Safety Report 7346810-2 (Version None)
Quarter: 2011Q1

REPORT INFORMATION
  Report Type: 
  Country: None (occurrence: None)
  Receive Date: 20110311
  Receipt Date: 20110310
  Transmission Date: 20110831
  Serious: Yes (Death)
  Sender: FDA-Public Use
  Company Number: GB-ABBOTT-10P-167-0672832-00

PATIENT
  Sex: Female
  Weight: 102 kg

DRUGS (2)
  1. HUMIRA [Suspect]
     Indication: RHEUMATOID ARTHRITIS
     Route: 058
     Dates: start: 20051006, end: 20090626
  2. METHOTREXATE [Concomitant]
     Indication: PRODUCT USED FOR UNKNOWN INDICATION
     Dates: start: 20051008

REACTIONS (5)
  - METASTASIS [None]
  - HAEMOGLOBIN DECREASED [None]
  - VULVAL CANCER [None]
  - LYMPHADENOPATHY [None]
  - LOBAR PNEUMONIA [None]
